FAERS Safety Report 10136204 (Version 2)
Quarter: 2014Q2

REPORT INFORMATION
  Report Type: Spontaneous
  Country: CN (occurrence: CN)
  Receive Date: 20140429
  Receipt Date: 20140516
  Transmission Date: 20141212
  Serious: Yes (Hospitalization)
  Sender: FDA-Public Use
  Company Number: CN-JNJFOC-20140410227

PATIENT
  Age: 4 Year
  Sex: Male
  Weight: 17 kg

DRUGS (1)
  1. TYLENOL COLD [Suspect]
     Indication: UPPER RESPIRATORY TRACT INFECTION
     Route: 048
     Dates: start: 20130419, end: 20130420

REACTIONS (2)
  - Haematuria [Recovered/Resolved]
  - Renal colic [Unknown]
